FAERS Safety Report 21654078 (Version 1)
Quarter: 2022Q4

REPORT INFORMATION
  Report Type: Report from Study
  Country: MX (occurrence: MX)
  Receive Date: 20221129
  Receipt Date: 20221129
  Transmission Date: 20230112
  Serious: Yes (Other)
  Sender: FDA-Public Use
  Company Number: MX-002147023-NVSC2022MX275370

PATIENT
  Sex: Female
  Weight: 78 kg

DRUGS (2)
  1. HYDROCHLOROTHIAZIDE\VALSARTAN [Suspect]
     Active Substance: HYDROCHLOROTHIAZIDE\VALSARTAN
     Indication: Hypertension
     Dosage: 1 DOSAGE FORM, QD (320 MG)
     Route: 048
     Dates: start: 201003
  2. HYDROCHLOROTHIAZIDE\VALSARTAN [Suspect]
     Active Substance: HYDROCHLOROTHIAZIDE\VALSARTAN
     Dosage: 1 DOSAGE FORM, QD (80 MG)
     Route: 048
     Dates: start: 2017, end: 202209

REACTIONS (4)
  - Dyspnoea [Unknown]
  - Oxygen consumption decreased [Unknown]
  - Chest pain [Unknown]
  - Blood pressure increased [Unknown]
